FAERS Safety Report 21722597 (Version 1)
Quarter: 2022Q4

REPORT INFORMATION
  Report Type: Spontaneous
  Country: US (occurrence: US)
  Receive Date: 20221213
  Receipt Date: 20221213
  Transmission Date: 20230112
  Serious: No
  Sender: FDA-Public Use
  Company Number: US-PFIZER INC-202201364410

PATIENT
  Age: 46 Year
  Sex: Female
  Weight: 93.44 kg

DRUGS (6)
  1. PAXLOVID [Suspect]
     Active Substance: NIRMATRELVIR\RITONAVIR
     Indication: COVID-19 treatment
     Dosage: 300MG-100MG DOSE PACK; 150X2-100MG
     Dates: start: 20221203, end: 20221207
  2. IBUPROFEN [Concomitant]
     Active Substance: IBUPROFEN
  3. KETOROLAC [Concomitant]
     Active Substance: KETOROLAC TROMETHAMINE
     Indication: Inflammatory pain
     Dosage: 10 MG
  4. RIZATRIPTAN [Concomitant]
     Active Substance: RIZATRIPTAN
     Indication: Migraine
     Dosage: SHE TOOK 2 OR 3 THE WEEK BEFORE
  5. BACLOFEN [Concomitant]
     Active Substance: BACLOFEN
  6. LEVOCARNITINE [Concomitant]
     Active Substance: LEVOCARNITINE
     Indication: Liver disorder
     Dosage: 3 TIMES A DAY

REACTIONS (15)
  - Skin discolouration [Recovered/Resolved]
  - Ear pain [Unknown]
  - Dysgeusia [Unknown]
  - Abnormal dreams [Unknown]
  - Headache [Unknown]
  - Rash [Unknown]
  - Decreased appetite [Unknown]
  - Nausea [Unknown]
  - Chest pain [Unknown]
  - Chromaturia [Unknown]
  - Renal disorder [Unknown]
  - Burning sensation [Unknown]
  - Memory impairment [Unknown]
  - Therapeutic product effect incomplete [Unknown]
  - Face injury [Unknown]

NARRATIVE: CASE EVENT DATE: 20221201
